FAERS Safety Report 8530245-0 (Version None)
Quarter: 2012Q3

REPORT INFORMATION
  Report Type: 
  Country: None (occurrence: None)
  Receive Date: 20120723
  Receipt Date: 20120720
  Transmission Date: 20120928
  Serious: Yes (Hospitalization)
  Sender: FDA-Public Use
  Company Number: FR-JNJFOC-20120704524

PATIENT
  Age: 45 Year
  Sex: Female

DRUGS (5)
  1. NIZORAL [Suspect]
     Route: 048
     Dates: start: 20101218
  2. CHLORMADINONE ACETATE TAB [Suspect]
     Indication: PRODUCT USED FOR UNKNOWN INDICATION
     Route: 048
  3. IRBESARTAN [Suspect]
     Indication: PRODUCT USED FOR UNKNOWN INDICATION
     Route: 048
     Dates: start: 20101001
  4. JANUVIA [Suspect]
     Indication: PRODUCT USED FOR UNKNOWN INDICATION
     Route: 048
     Dates: start: 20090501, end: 20100601
  5. NIZORAL [Suspect]
     Indication: PRODUCT USED FOR UNKNOWN INDICATION
     Route: 048
     Dates: end: 20110114

REACTIONS (8)
  - VISUAL ACUITY REDUCED [None]
  - ASTHENIA [None]
  - DRY MOUTH [None]
  - DIARRHOEA [None]
  - TRANSAMINASES INCREASED [None]
  - DRY EYE [None]
  - CHROMATURIA [None]
  - GAMMA-GLUTAMYLTRANSFERASE INCREASED [None]
